FAERS Safety Report 22778924 (Version 3)
Quarter: 2023Q4

REPORT INFORMATION
  Report Type: Report from Study
  Country: US (occurrence: US)
  Receive Date: 20230802
  Receipt Date: 20231031
  Transmission Date: 20240109
  Serious: Yes (Other)
  Sender: FDA-Public Use
  Company Number: US-ABBVIE-5350704

PATIENT
  Age: 65 Year
  Sex: Female

DRUGS (1)
  1. HUMIRA [Suspect]
     Active Substance: ADALIMUMAB
     Indication: Psoriatic arthropathy
     Dosage: FORM STRENGTH UNITS:40  MILLIGRAM CITRATE FREE
     Route: 058
     Dates: start: 20221005

REACTIONS (2)
  - Back pain [Unknown]
  - Skin papilloma [Recovered/Resolved]

NARRATIVE: CASE EVENT DATE: 20230827
